FAERS Safety Report 4890102-8 (Version None)
Quarter: 2005Q4

REPORT INFORMATION
  Report Type: 
  Country: None (occurrence: None)
  Receive Date: 20051220
  Receipt Date: 20050815
  Transmission Date: 20060501
  Serious: Yes (Other)
  Sender: FDA-Public Use
  Company Number: 2005116105

PATIENT
  Sex: Male
  Weight: 112.0385 kg

DRUGS (9)
  1. DOXAZOSIN (DOXAZOSIN) [Suspect]
     Indication: HYPERTENSION
     Dosage: 2 MG, ORAL
     Route: 048
  2. ZESTRIL [Concomitant]
  3. ZOLOFT [Concomitant]
  4. THIAMINE (THIAMINE) [Concomitant]
  5. ATIVAN [Concomitant]
  6. TIAZAC [Concomitant]
  7. FERROUS SULFATE TAB [Concomitant]
  8. PROTONIX [Concomitant]
  9. NYSTATIN [Concomitant]

REACTIONS (2)
  - HYPOTENSION [None]
  - OVERDOSE [None]
